FAERS Safety Report 14627337 (Version 6)
Quarter: 2019Q2

REPORT INFORMATION
  Report Type: Spontaneous
  Country: CZ (occurrence: CZ)
  Receive Date: 20180312
  Receipt Date: 20190520
  Transmission Date: 20190711
  Serious: Yes (Other)
  Sender: FDA-Public Use
  Company Number: CZ-MYLANLABS-2018M1014711

PATIENT
  Age: 89 Year
  Sex: Female
  Weight: 44 kg

DRUGS (21)
  1. CORDARONE [Interacting]
     Active Substance: AMIODARONE HYDROCHLORIDE
     Indication: CARDIAC FAILURE
     Dosage: 200 MG, QD, 1-0-0
     Route: 048
  2. SECATOXIN [Suspect]
     Active Substance: ERGOLOID MESYLATES
     Indication: PRODUCT USED FOR UNKNOWN INDICATION
     Dosage: UNK,GTT; 20-20-20
     Route: 065
  3. AIRFLUSAN FORSPIRO [Concomitant]
     Active Substance: FLUTICASONE PROPIONATE\SALMETEROL XINAFOATE
     Indication: PRODUCT USED FOR UNKNOWN INDICATION
     Dosage: 1 DOSAGE FORM, BID
  4. PENTOXIFYLLINE. [Concomitant]
     Active Substance: PENTOXIFYLLINE
     Indication: PRODUCT USED FOR UNKNOWN INDICATION
     Dosage: 400 MG, QD
     Route: 065
  5. ALENDRONATE [Interacting]
     Active Substance: ALENDRONATE SODIUM
     Dosage: UNK, QW
  6. FURON                              /00032601/ [Suspect]
     Active Substance: FUROSEMIDE
     Indication: PRODUCT USED FOR UNKNOWN INDICATION
     Dosage: 40 MG, QD
     Route: 065
  7. DITHIADEN [Concomitant]
     Active Substance: BISULEPIN
     Indication: PRODUCT USED FOR UNKNOWN INDICATION
     Dosage: 2 MG, QD
     Route: 065
  8. HYDERGINE                          /00436902/ [Concomitant]
     Indication: PRODUCT USED FOR UNKNOWN INDICATION
     Dosage: 60 GTT, QD
     Route: 048
  9. FURON                              /00032601/ [Suspect]
     Active Substance: FUROSEMIDE
     Dosage: 20 MG, UNK, AS NECESSARY
     Route: 048
  10. ALENDRONATE SANDOZ [Concomitant]
     Active Substance: ALENDRONATE SODIUM
     Dosage: 70 MILLIGRAM, QW
     Route: 048
     Dates: start: 2006
  11. MILURIT [Concomitant]
     Active Substance: ALLOPURINOL
     Indication: HYPERURICAEMIA
     Dosage: 300 MILLIGRAM, QD
     Route: 048
  12. FLUTICASONE W/SALMETEROL [Concomitant]
     Active Substance: FLUTICASONE PROPIONATE\SALMETEROL XINAFOATE
     Dosage: 1 DF, QD, 50/250
     Route: 065
  13. VEROSPIRON [Interacting]
     Active Substance: SPIRONOLACTONE
     Indication: PRODUCT USED FOR UNKNOWN INDICATION
     Dosage: 25 MILLIGRAM, QD (1-0-0)
     Route: 048
  14. PENTOMER RETARD [Interacting]
     Active Substance: PENTOXIFYLLINE
     Indication: PRODUCT USED FOR UNKNOWN INDICATION
     Dosage: 3 DOSAGE FORM, QD,1-1-1
     Route: 065
  15. ALENDRONATE [Suspect]
     Active Substance: ALENDRONATE SODIUM
     Indication: OSTEOPOROSIS
     Dosage: 70 MG, QW
     Route: 048
     Dates: start: 2006
  16. DIGOXIN. [Interacting]
     Active Substance: DIGOXIN
     Indication: CARDIAC FAILURE
     Dosage: 0.13 ?G, QD (.125 UG,QD) (1-0-0)
     Route: 048
  17. DILATREND [Interacting]
     Active Substance: CARVEDILOL
     Indication: PRODUCT USED FOR UNKNOWN INDICATION
     Dosage: 6.25 MG, QD, 1-0-0
     Route: 048
  18. WARFARIN [Concomitant]
     Active Substance: WARFARIN
     Indication: PRODUCT USED FOR UNKNOWN INDICATION
     Dosage: 3 MILLIGRAM, QD (1-0-0)
     Route: 065
  19. ALENDRONATE SANDOZ [Concomitant]
     Active Substance: ALENDRONATE SODIUM
     Indication: OSTEOPOROSIS
     Dosage: UNK UNK, QW
     Dates: start: 2016
  20. MILURIT [Concomitant]
     Active Substance: ALLOPURINOL
     Dosage: UNK
  21. FLUTICASONE W/SALMETEROL [Concomitant]
     Active Substance: FLUTICASONE PROPIONATE\SALMETEROL XINAFOATE
     Indication: PRODUCT USED FOR UNKNOWN INDICATION
     Dosage: 2 DF, QD, 50/250
     Route: 065

REACTIONS (16)
  - Bradycardia [Unknown]
  - Heart rate decreased [Unknown]
  - Overdose [Unknown]
  - Drug interaction [Unknown]
  - Hypotension [Unknown]
  - Hyperkalaemia [Unknown]
  - Vomiting [Unknown]
  - Cardioactive drug level increased [Unknown]
  - Weight decreased [Unknown]
  - Fall [Unknown]
  - Decreased appetite [Unknown]
  - Nausea [Unknown]
  - Diarrhoea [Unknown]
  - Labelled drug-drug interaction medication error [Unknown]
  - Vision blurred [Unknown]
  - Toxicity to various agents [Unknown]
